FAERS Safety Report 7704489-1 (Version None)
Quarter: 2011Q3

REPORT INFORMATION
  Report Type: 
  Country: None (occurrence: None)
  Receive Date: 20110823
  Receipt Date: 20110811
  Transmission Date: 20111222
  Serious: Yes (Hospitalization)
  Sender: FDA-Public Use
  Company Number: JP-NOVOPROD-332861

PATIENT

DRUGS (15)
  1. ADOAIR [Concomitant]
     Dosage: 2 TIMES
     Route: 055
     Dates: start: 20090526
  2. ROCALTROL [Concomitant]
     Indication: THYROID CANCER
     Dosage: 1 UG, QD
     Route: 048
     Dates: start: 20030101
  3. AMARYL [Concomitant]
     Dosage: 3 MG, QD
     Route: 048
     Dates: start: 20110603
  4. AMARYL [Concomitant]
     Dosage: 1 MG, QD
     Route: 048
     Dates: start: 20110605, end: 20110727
  5. MUCODYNE [Concomitant]
     Indication: ANALGESIC ASTHMA SYNDROME
     Dosage: 1500 MG, QD
     Route: 048
     Dates: start: 20090825
  6. LEVOTHYROXINE SODIUM [Concomitant]
     Indication: THYROID DISORDER
     Dosage: 150 UG, QD
     Route: 048
     Dates: start: 20030101
  7. VICTOZA [Suspect]
     Indication: TYPE 2 DIABETES MELLITUS
     Dosage: 0.3 MG, QD
     Route: 058
     Dates: start: 20110603
  8. CLARITHROMYCIN [Concomitant]
     Indication: ANALGESIC ASTHMA SYNDROME
     Dosage: 400 MG, QD
     Route: 048
     Dates: start: 20090825
  9. METHYCOBAL [Concomitant]
     Indication: DIABETIC NEUROPATHY
     Dosage: 1500 UG, QD
     Route: 048
     Dates: start: 20080901
  10. AMARYL [Concomitant]
     Indication: TYPE 2 DIABETES MELLITUS
     Dosage: 0.5 MG, QD
     Route: 048
     Dates: start: 20080326
  11. THEO-DUR [Concomitant]
     Indication: ANALGESIC ASTHMA SYNDROME
     Dosage: 200 MG, QD
     Route: 048
     Dates: start: 20021206
  12. CALCIUM LACTATE [Concomitant]
     Indication: THYROID CANCER
     Dosage: 6 G, QD
     Route: 048
     Dates: start: 20030101
  13. LOXONIN [Concomitant]
     Indication: OTITIS MEDIA
     Dosage: 1 TAB/PO
     Route: 048
  14. VICTOZA [Suspect]
     Dosage: 0.6 MG, QD
     Route: 058
     Dates: end: 20110727
  15. ONON [Concomitant]
     Indication: ANALGESIC ASTHMA SYNDROME
     Dosage: 450 MG, QD
     Route: 048
     Dates: start: 20021206

REACTIONS (3)
  - OTITIS MEDIA [None]
  - PNEUMONIA [None]
  - ASTHMA [None]
